FAERS Safety Report 22291506 (Version 2)
Quarter: 2023Q2

REPORT INFORMATION
  Report Type: Spontaneous
  Country: EE (occurrence: EE)
  Receive Date: 20230506
  Receipt Date: 20230511
  Transmission Date: 20230722
  Serious: Yes (Other)
  Sender: FDA-Public Use
  Company Number: EE-002147023-NVSC2023EE100896

PATIENT
  Age: 17 Year
  Sex: Female

DRUGS (2)
  1. DEXAMETHASONE [Suspect]
     Active Substance: DEXAMETHASONE
     Indication: Conjunctivitis
     Dosage: UNK (20 TIMES)
     Route: 061
  2. DEXAMETHASONE [Suspect]
     Active Substance: DEXAMETHASONE
     Indication: Eyelid rash

REACTIONS (2)
  - Cataract subcapsular [Unknown]
  - Glaucomatous optic neuropathy [Unknown]
